FAERS Safety Report 5528894-7 (Version None)
Quarter: 2007Q4

REPORT INFORMATION
  Report Type: 
  Country: None (occurrence: None)
  Receive Date: 20071126
  Receipt Date: 20071025
  Transmission Date: 20080405
  Serious: Yes (Other)
  Sender: FDA-Public Use
  Company Number: CHROB-E-20070007

PATIENT
  Age: 37 Year
  Sex: Female

DRUGS (1)
  1. NAVELBINE [Suspect]
     Dates: start: 20060903, end: 20060903

REACTIONS (3)
  - ACCIDENTAL EXPOSURE [None]
  - DRUG EXPOSURE DURING PREGNANCY [None]
  - HEART DISEASE CONGENITAL [None]
